FAERS Safety Report 7933035-2 (Version None)
Quarter: 2011Q4

REPORT INFORMATION
  Report Type: 
  Country: None (occurrence: None)
  Receive Date: 20111122
  Receipt Date: 20111109
  Transmission Date: 20120403
  Serious: Yes (Hospitalization, Other)
  Sender: FDA-Public Use
  Company Number: US-ELI_LILLY_AND_COMPANY-US201104004032

PATIENT
  Sex: Female

DRUGS (18)
  1. LUTEIN [Concomitant]
     Indication: EYE DISORDER
     Dosage: 20 MG, QD
  2. AMLODIPINE [Concomitant]
     Dosage: 5 MG, QD
  3. REQUIP [Concomitant]
     Indication: RESTLESS LEGS SYNDROME
     Dosage: 1 MG, PRN
  4. ANALGESICS [Concomitant]
     Indication: PAIN
  5. BONIVA [Concomitant]
  6. ACETAMINOPHEN AND HYDROCODONE BITARTRATE [Concomitant]
  7. MAGNESIUM [Concomitant]
     Dosage: UNK, QD
  8. FISH OIL [Concomitant]
     Dosage: UNK, EVERY 6 HRS
  9. CITRACAL [Concomitant]
     Dosage: 400 MG, BID
  10. FORTEO [Suspect]
     Indication: OSTEOPOROSIS
     Dosage: 20 UG, QD
     Dates: start: 20110407, end: 20110422
  11. ASPIRIN [Concomitant]
     Dosage: 325 MG, QD
  12. CENTRUM [Concomitant]
  13. LOVASTATIN [Concomitant]
     Indication: BLOOD CHOLESTEROL ABNORMAL
     Dosage: 20 MG, QD
  14. CALCIUM [Concomitant]
  15. XALATAN [Concomitant]
     Indication: EYE DISORDER
     Dosage: 1 DF, QD
  16. CENTRUM SILVER [Concomitant]
     Dosage: UNK, QD
  17. METOPROLOL TARTRATE [Concomitant]
     Dosage: 50 MG, QD
  18. NEXIUM [Concomitant]
     Indication: DYSPHONIA
     Dosage: UNK, QD

REACTIONS (11)
  - DYSPHONIA [None]
  - DYSARTHRIA [None]
  - GAIT DISTURBANCE [None]
  - INJECTION SITE ERYTHEMA [None]
  - VIITH NERVE PARALYSIS [None]
  - HYPOKINESIA [None]
  - MEMORY IMPAIRMENT [None]
  - CEREBROVASCULAR ACCIDENT [None]
  - HEMIPARESIS [None]
  - BRADYPHRENIA [None]
  - COUGH [None]
